FAERS Safety Report 24719307 (Version 1)
Quarter: 2024Q4

REPORT INFORMATION
  Report Type: Spontaneous
  Country: IT (occurrence: IT)
  Receive Date: 20241210
  Receipt Date: 20241210
  Transmission Date: 20250115
  Serious: Yes (Death)
  Sender: RECORDATI
  Company Number: IT-RECORDATI RARE DISEASE INC.-2024009646

PATIENT

DRUGS (1)
  1. SYLVANT [Suspect]
     Active Substance: SILTUXIMAB
     Indication: Product used for unknown indication

REACTIONS (1)
  - Death [Fatal]
